FAERS Safety Report 21237829 (Version 2)
Quarter: 2023Q1

REPORT INFORMATION
  Report Type: Other
  Country: CA (occurrence: None)
  Receive Date: 20220822
  Receipt Date: 20230120
  Transmission Date: 20230418
  Serious: No
  Sender: FDA-Public Use
  Company Number: CA-ROCHE-3165001

PATIENT
  Sex: Female

DRUGS (4)
  1. OCREVUS [Suspect]
     Active Substance: OCRELIZUMAB
     Indication: Relapsing-remitting multiple sclerosis
     Dosage: THEN 600 MG EVERY 6 MONTH
     Route: 042
     Dates: start: 20210629
  2. DULOXETINE [Concomitant]
     Active Substance: DULOXETINE
  3. YAZ [Concomitant]
     Active Substance: DROSPIRENONE\ETHINYL ESTRADIOL
  4. AMANTADINE [Concomitant]
     Active Substance: AMANTADINE

REACTIONS (2)
  - COVID-19 [Recovered/Resolved]
  - Hyperhidrosis [Recovering/Resolving]
